FAERS Safety Report 18517110 (Version 1)
Quarter: 2020Q4

REPORT INFORMATION
  Report Type: Spontaneous
  Country: PL (occurrence: PL)
  Receive Date: 20201118
  Receipt Date: 20201118
  Transmission Date: 20210114
  Serious: Yes (Other)
  Sender: FDA-Public Use
  Company Number: PL-B.I. PHARMACEUTICALS,INC./RIDGEFIELD-2020-BI-060761

PATIENT
  Age: 54 Year
  Sex: Male

DRUGS (2)
  1. VARGATEF [Suspect]
     Active Substance: NINTEDANIB
     Indication: LUNG ADENOCARCINOMA
  2. DOCETAXEL. [Concomitant]
     Active Substance: DOCETAXEL
     Indication: LUNG ADENOCARCINOMA

REACTIONS (5)
  - Pruritus [Recovered/Resolved]
  - Skin lesion [Recovered/Resolved]
  - Lung adenocarcinoma [Unknown]
  - Skin exfoliation [Recovered/Resolved]
  - Rash vesicular [Recovered/Resolved]

NARRATIVE: CASE EVENT DATE: 201912
